FAERS Safety Report 15276641 (Version 1)
Quarter: 2018Q3

REPORT INFORMATION
  Report Type: Spontaneous
  Country: US (occurrence: US)
  Receive Date: 20180814
  Receipt Date: 20180814
  Transmission Date: 20181010
  Serious: Yes (Other)
  Sender: FDA-Public Use
  Company Number: US-LEO PHARMA-310390

PATIENT
  Age: 47 Year
  Sex: Female

DRUGS (1)
  1. PICATO [Suspect]
     Active Substance: INGENOL MEBUTATE
     Indication: HYPERKERATOSIS
     Dosage: NDC # 50222?502?47
     Route: 061
     Dates: start: 20180803

REACTIONS (4)
  - Anaphylactic shock [Recovered/Resolved]
  - Swelling face [Recovered/Resolved]
  - Application site pain [Not Recovered/Not Resolved]
  - Application site vesicles [Not Recovered/Not Resolved]

NARRATIVE: CASE EVENT DATE: 20180803
